FAERS Safety Report 6016930-3 (Version None)
Quarter: 2008Q4

REPORT INFORMATION
  Report Type: 
  Country: None (occurrence: None)
  Receive Date: 20081218
  Receipt Date: 20081207
  Transmission Date: 20090506
  Serious: Yes (Other)
  Sender: FDA-Public Use
  Company Number: 237880K06USA

PATIENT
  Age: 38 Year
  Sex: Female
  Weight: 109 kg

DRUGS (8)
  1. REBIF [Suspect]
     Indication: MULTIPLE SCLEROSIS
     Dosage: 44 MCG, 3 IN 1 WEEKS, SUBCUTANEOUS
     Route: 058
     Dates: start: 20060830
  2. PREVACID [Concomitant]
  3. ESTRADIOL (ESTRADIOL /00045401/) [Concomitant]
  4. PAXIL (PAROXETINE/00045401/) [Concomitant]
  5. XANAX [Concomitant]
  6. NEURONTIN [Concomitant]
  7. IBUPROFEN [Concomitant]
  8. BACLOFEN [Concomitant]

REACTIONS (4)
  - CONVULSION [None]
  - DRUG INEFFECTIVE [None]
  - FAMILY STRESS [None]
  - MUSCLE SPASTICITY [None]
